FAERS Safety Report 18324475 (Version 1)
Quarter: 2020Q3

REPORT INFORMATION
  Report Type: Spontaneous
  Country: US (occurrence: US)
  Receive Date: 20200929
  Receipt Date: 20200929
  Transmission Date: 20201103
  Serious: No
  Sender: FDA-Public Use
  Company Number: US-BION-008424

PATIENT
  Sex: Female
  Weight: 54.43 kg

DRUGS (1)
  1. IMODIUM A?D [Suspect]
     Active Substance: LOPERAMIDE HYDROCHLORIDE
     Indication: FLATULENCE
     Dosage: 1 LIQUID GEL ONCE DAILY?LAST DATE OF ADMINISTRATION: 22?NOV?2019?ABOUT A WEEK
     Route: 048

REACTIONS (1)
  - Product use in unapproved indication [Not Recovered/Not Resolved]
